FAERS Safety Report 17509965 (Version 1)
Quarter: 2020Q1

REPORT INFORMATION
  Report Type: Spontaneous
  Country: US (occurrence: US)
  Receive Date: 20200226
  Receipt Date: 20200226
  Transmission Date: 20200409
  Serious: Yes (Hospitalization)
  Sender: FDA-Public Use
  Company Number: None

PATIENT
  Age: 86 Year
  Sex: Male

DRUGS (8)
  1. VALPROLIC ACD CAP [Concomitant]
  2. TAMSULOSIN [Concomitant]
     Active Substance: TAMSULOSIN
  3. IMBRUVICA [Concomitant]
     Active Substance: IBRUTINIB
  4. MELATONIN [Concomitant]
     Active Substance: MELATONIN
  5. ACYCLOVIR. [Concomitant]
     Active Substance: ACYCLOVIR
  6. LASIX [Concomitant]
     Active Substance: FUROSEMIDE
  7. ESBRIET [Suspect]
     Active Substance: PIRFENIDONE
     Dosage: ?          OTHER FREQUENCY:3 TABS 3X DAILY ;?
     Route: 048
     Dates: start: 20191105
  8. CRESTOR [Concomitant]
     Active Substance: ROSUVASTATIN CALCIUM

REACTIONS (2)
  - Cardiac disorder [None]
  - Therapy cessation [None]

NARRATIVE: CASE EVENT DATE: 20200204
